FAERS Safety Report 24931439 (Version 2)
Quarter: 2025Q1

REPORT INFORMATION
  Report Type: Report from Study
  Country: US (occurrence: US)
  Receive Date: 20250205
  Receipt Date: 20250327
  Transmission Date: 20250408
  Serious: Yes (Other)
  Sender: AURINIA PHARMACEUTICALS
  Company Number: US-AURINIA PHARMACEUTICALS INC.-AUR-006894

PATIENT
  Age: 26 Year
  Sex: Female
  Weight: 55.782 kg

DRUGS (8)
  1. LUPKYNIS [Suspect]
     Active Substance: VOCLOSPORIN
     Indication: Lupus nephritis
     Dosage: 23.7 MILLIGRAM, QD
     Route: 048
     Dates: start: 20230620, end: 20231115
  2. LUPKYNIS [Suspect]
     Active Substance: VOCLOSPORIN
     Dates: start: 20231123
  3. LUPKYNIS [Suspect]
     Active Substance: VOCLOSPORIN
     Dosage: 23.7 MILLIGRAM, QD
     Route: 048
     Dates: start: 20230620, end: 20230706
  4. LUPKYNIS [Suspect]
     Active Substance: VOCLOSPORIN
     Route: 048
     Dates: start: 20230718, end: 20230726
  5. LUPKYNIS [Suspect]
     Active Substance: VOCLOSPORIN
     Route: 048
     Dates: start: 20230801, end: 20230817
  6. LUPKYNIS [Suspect]
     Active Substance: VOCLOSPORIN
     Route: 048
     Dates: start: 20230817, end: 20231027
  7. LUPKYNIS [Suspect]
     Active Substance: VOCLOSPORIN
     Route: 048
     Dates: start: 20231108, end: 20231123
  8. LUPKYNIS [Suspect]
     Active Substance: VOCLOSPORIN
     Route: 048
     Dates: start: 20231125

REACTIONS (3)
  - Infection [Recovered/Resolved]
  - Blood pressure increased [Recovered/Resolved]
  - Exposure to SARS-CoV-2 [Recovered/Resolved]

NARRATIVE: CASE EVENT DATE: 20230706
